FAERS Safety Report 5736287-2 (Version None)
Quarter: 2008Q2

REPORT INFORMATION
  Report Type: 
  Country: None (occurrence: None)
  Receive Date: 20080513
  Receipt Date: 20080508
  Transmission Date: 20081010
  Serious: Yes (Death)
  Sender: FDA-Public Use
  Company Number: GB-NOVOPROD-275132

PATIENT
  Age: 77 Year
  Sex: Male

DRUGS (2)
  1. NOVOSEVEN [Suspect]
     Indication: POST PROCEDURAL HAEMORRHAGE
     Dosage: 90 UG, UNK
  2. TRANEXAMIC ACID [Suspect]
     Dosage: 500 MG, UNK

REACTIONS (1)
  - CEREBRAL INFARCTION [None]
